FAERS Safety Report 8934874 (Version 2)
Quarter: 2013Q4

REPORT INFORMATION
  Report Type: Spontaneous
  Country: DK (occurrence: DK)
  Receive Date: 20121129
  Receipt Date: 20131205
  Transmission Date: 20140711
  Serious: Yes (Other)
  Sender: FDA-Public Use
  Company Number: DK-PFIZER INC-2012299936

PATIENT
  Age: 40 Year
  Sex: Male

DRUGS (1)
  1. METHYLPREDNISOLONE SODIUM SUCCINATE [Suspect]
     Indication: SEASONAL ALLERGY
     Dosage: 80 MG EVERY SUMMER
     Route: 030
     Dates: start: 2008, end: 20121009

REACTIONS (1)
  - Chorioretinopathy [Recovering/Resolving]
